FAERS Safety Report 21771548 (Version 1)
Quarter: 2022Q4

REPORT INFORMATION
  Report Type: Spontaneous
  Country: US (occurrence: US)
  Receive Date: 20221223
  Receipt Date: 20221223
  Transmission Date: 20230112
  Serious: No
  Sender: FDA-Public Use
  Company Number: US-PADAGIS-2022PAD01117

PATIENT

DRUGS (2)
  1. TESTOSTERONE [Suspect]
     Active Substance: TESTOSTERONE
     Indication: Hypogonadism male
     Dosage: 2 PUMPS AT NIGHT
     Route: 065
     Dates: start: 20220826, end: 202211
  2. TESTOSTERONE [Suspect]
     Active Substance: TESTOSTERONE
     Dosage: 3 PUMPS DAILY AT NIGHT
     Route: 065
     Dates: start: 202211

REACTIONS (4)
  - Asthenia [Not Recovered/Not Resolved]
  - Depression [Not Recovered/Not Resolved]
  - Libido decreased [Not Recovered/Not Resolved]
  - Wrong technique in product usage process [Unknown]

NARRATIVE: CASE EVENT DATE: 20220826
